FAERS Safety Report 4743511-1 (Version None)
Quarter: 2005Q3

REPORT INFORMATION
  Report Type: 
  Country: None (occurrence: None)
  Receive Date: 20050810
  Receipt Date: 20050810
  Transmission Date: 20060218
  Serious: Yes (Death)
  Sender: FDA-Public Use
  Company Number: None

PATIENT
  Age: 45 Year
  Sex: Female

DRUGS (11)
  1. AXERT [Suspect]
     Indication: MIGRAINE
     Dosage: 1 TAB AT ONSET . MR IN 2 H
     Dates: start: 20050719
  2. RELPAX [Suspect]
     Indication: MIGRAINE
     Dosage: 1 ONSET H/A . MR Q2H MAX 2/DAY
     Dates: start: 20050731
  3. NEXIUM [Concomitant]
  4. ASTEIN [Concomitant]
  5. TIZANIDINE HCL [Concomitant]
  6. RELAFEN [Concomitant]
  7. MOTRIN [Concomitant]
  8. ALEVE [Concomitant]
  9. LODINE [Concomitant]
  10. CELEBREX [Concomitant]
  11. MOTRIN [Concomitant]

REACTIONS (10)
  - ABDOMINAL PAIN [None]
  - DIARRHOEA [None]
  - ELECTROMECHANICAL DISSOCIATION [None]
  - GASTROINTESTINAL DISORDER [None]
  - GASTROINTESTINAL HAEMORRHAGE [None]
  - HAEMATOCHEZIA [None]
  - INFARCTION [None]
  - MUCOSAL EXFOLIATION [None]
  - SKIN EXFOLIATION [None]
  - VOMITING [None]
